FAERS Safety Report 9280965 (Version 2)
Quarter: 2013Q2

REPORT INFORMATION
  Report Type: Report from Study
  Country: NL (occurrence: NL)
  Receive Date: 20130509
  Receipt Date: 20130624
  Transmission Date: 20140414
  Serious: Yes (Hospitalization)
  Sender: FDA-Public Use
  Company Number: NL-ABBOTT-13P-114-1085342-00

PATIENT
  Age: 58 Year
  Sex: Female
  Weight: 87 kg

DRUGS (10)
  1. LUCRIN DEPOT [Suspect]
     Indication: MENOPAUSAL SYMPTOMS
     Route: 058
     Dates: start: 20130326, end: 20130326
  2. PREDNISOLON [Concomitant]
     Indication: ASTHMA
     Dosage: 2/1 TIME DAILY
     Route: 048
  3. THEOPHYLLINE [Concomitant]
     Indication: ASTHMA
     Route: 048
  4. TRIAMTEREEN/HYDROCHLOOTTHIAZIDE [Concomitant]
     Indication: FLUID RETENTION
     Dosage: 50/25 MG
     Route: 048
  5. ATENOLOL [Concomitant]
     Indication: HYPERTENSION
     Route: 048
  6. PANTOPRAZOL [Concomitant]
     Indication: GASTRIC DISORDER
     Route: 048
  7. PANTOPRAZOL [Concomitant]
     Indication: PROPHYLAXIS
  8. DESLORATADINE [Concomitant]
     Indication: HYPERSENSITIVITY
     Route: 048
  9. INSULINE [Concomitant]
     Indication: DIABETES MELLITUS
     Route: 058
  10. DIAZEPAM [Concomitant]
     Indication: INSOMNIA
     Route: 048
     Dates: start: 20130326

REACTIONS (16)
  - Asthma [Recovered/Resolved]
  - Paraesthesia [Not Recovered/Not Resolved]
  - Nasal discomfort [Not Recovered/Not Resolved]
  - Influenza like illness [Not Recovered/Not Resolved]
  - Headache [Not Recovered/Not Resolved]
  - Headache [Not Recovered/Not Resolved]
  - Eye pain [Not Recovered/Not Resolved]
  - Abnormal sensation in eye [Not Recovered/Not Resolved]
  - Insomnia [Not Recovered/Not Resolved]
  - Urinary incontinence [Not Recovered/Not Resolved]
  - Hot flush [Not Recovered/Not Resolved]
  - Hypersensitivity [Unknown]
  - Dysgeusia [Not Recovered/Not Resolved]
  - Joint stiffness [Not Recovered/Not Resolved]
  - Myalgia [Not Recovered/Not Resolved]
  - Arthralgia [Not Recovered/Not Resolved]
